FAERS Safety Report 20810482 (Version 1)
Quarter: 2022Q2

REPORT INFORMATION
  Report Type: Spontaneous
  Country: CN (occurrence: CN)
  Receive Date: 20220510
  Receipt Date: 20220510
  Transmission Date: 20220721
  Serious: Yes (Other)
  Sender: FDA-Public Use
  Company Number: CN-PFIZER INC-202200679471

PATIENT
  Age: 28 Year
  Sex: Female
  Weight: 60 kg

DRUGS (2)
  1. VFEND [Suspect]
     Active Substance: VORICONAZOLE
     Indication: Intracranial infection
     Dosage: 0.4 G, 1X/DAY
     Route: 041
     Dates: start: 20220322, end: 20220428
  2. VFEND [Suspect]
     Active Substance: VORICONAZOLE
     Dosage: 0.2 G, 1X/DAY (QN)
     Route: 041
     Dates: start: 20220322, end: 20220428

REACTIONS (7)
  - Hallucination [Recovering/Resolving]
  - Agitation [Recovering/Resolving]
  - Disorganised speech [Unknown]
  - Halo vision [Unknown]
  - Body temperature increased [Recovering/Resolving]
  - Hypertension [Recovering/Resolving]
  - Off label use [Unknown]

NARRATIVE: CASE EVENT DATE: 20220322
